FAERS Safety Report 8586553-0 (Version None)
Quarter: 2012Q3

REPORT INFORMATION
  Report Type: 
  Country: None (occurrence: None)
  Receive Date: 20120810
  Receipt Date: 20120712
  Transmission Date: 20120928
  Serious: Yes (Death, Life-Threatening)
  Sender: FDA-Public Use
  Company Number: CA-ASTRAZENECA-2012SE38774

PATIENT
  Age: 65 Year
  Sex: Male

DRUGS (14)
  1. TAXOTERE [Concomitant]
     Dosage: 10 CYCLES
     Dates: end: 20100801
  2. PREDNISONE TAB [Concomitant]
     Dosage: 10 CYCLES
     Dates: end: 20100801
  3. OXYCONTIN [Concomitant]
  4. GABAPENTIN [Concomitant]
  5. ZOLADEX [Suspect]
     Route: 058
     Dates: start: 20120415
  6. ZOLADEX [Suspect]
     Indication: PROSTATE CANCER
     Route: 058
     Dates: start: 20050204
  7. ZOLADEX [Suspect]
     Route: 058
     Dates: start: 20110408
  8. ZOLADEX [Suspect]
     Route: 058
     Dates: start: 20111011
  9. ZOLADEX [Suspect]
     Route: 058
     Dates: start: 20120113
  10. MITOXANTRONE [Concomitant]
     Dates: start: 20110101
  11. ZYTIGA [Concomitant]
     Route: 048
     Dates: start: 20111101
  12. ZOLADEX [Suspect]
     Route: 058
     Dates: start: 20110110
  13. PREDNISONE TAB [Concomitant]
     Dates: start: 20110101
  14. ZYTIGA [Concomitant]
     Route: 048
     Dates: end: 20111101

REACTIONS (4)
  - HYPONATRAEMIA [None]
  - MUSCULOSKELETAL PAIN [None]
  - NEOPLASM PROGRESSION [None]
  - HYPOKALAEMIA [None]
